FAERS Safety Report 13461702 (Version 1)
Quarter: 2017Q2

REPORT INFORMATION
  Report Type: Spontaneous
  Country: US (occurrence: US)
  Receive Date: 20170420
  Receipt Date: 20170420
  Transmission Date: 20170830
  Serious: Yes (Hospitalization)
  Sender: FDA-Public Use
  Company Number: US-ELI_LILLY_AND_COMPANY-US201704005713

PATIENT
  Sex: Female

DRUGS (3)
  1. FORTEO [Suspect]
     Active Substance: TERIPARATIDE
     Indication: OSTEOPOROSIS
     Dosage: UNK UNK, UNKNOWN
     Route: 065
     Dates: start: 20150507
  2. FORTEO [Suspect]
     Active Substance: TERIPARATIDE
     Indication: ARTHRITIS
     Dosage: UNK UNK, UNKNOWN
     Route: 065
  3. DULOXETINE HYDROCHLORIDE. [Concomitant]
     Active Substance: DULOXETINE HYDROCHLORIDE
     Indication: ARTHRITIS
     Dosage: UNK UNK, UNKNOWN
     Route: 065

REACTIONS (3)
  - Bone disorder [Unknown]
  - Arthritis [Recovering/Resolving]
  - Arthropathy [Recovering/Resolving]
